FAERS Safety Report 5798476-0 (Version None)
Quarter: 2008Q3

REPORT INFORMATION
  Report Type: 
  Country: None (occurrence: None)
  Receive Date: 20080702
  Receipt Date: 20080625
  Transmission Date: 20090109
  Serious: Yes (Other)
  Sender: FDA-Public Use
  Company Number: PHHY2008JP11053

PATIENT
  Age: 16 Year
  Sex: Female

DRUGS (1)
  1. METHERGINE [Suspect]
     Indication: ABORTION INDUCED
     Dosage: 0.5 MG/DAY
     Route: 048
     Dates: start: 20080611

REACTIONS (1)
  - ASTHMA [None]
